FAERS Safety Report 5528528-1 (Version None)
Quarter: 2007Q4

REPORT INFORMATION
  Report Type: 
  Country: None (occurrence: None)
  Receive Date: 20071121
  Receipt Date: 20071109
  Transmission Date: 20080405
  Serious: Yes (Death, Hospitalization)
  Sender: FDA-Public Use
  Company Number: 2007002072

PATIENT
  Age: 55 Year
  Sex: Female

DRUGS (7)
  1. ERLOTINIB (ERLOTINIB) (TABLET) (ERLOTINIB) [Suspect]
     Indication: GASTROINTESTINAL CARCINOMA
     Dosage: (150 MG, QD), ORAL
     Route: 048
     Dates: start: 20070917, end: 20071011
  2. BEVACIZUMAB (INJECTION FOR INFUSION) [Suspect]
     Indication: GASTROINTESTINAL CARCINOMA
     Dosage: (670 MG, Q2W), INTRAVENOUS
     Route: 042
     Dates: start: 20070917, end: 20070917
  3. TENORMIN [Concomitant]
  4. ACETAMINOPHEN [Concomitant]
  5. WHOLE BLOOD [Concomitant]
  6. PREDNISONE [Concomitant]
  7. IMOZOP (ZOPICLONE) [Concomitant]

REACTIONS (19)
  - ALANINE AMINOTRANSFERASE INCREASED [None]
  - ANAEMIA [None]
  - BLOOD BILIRUBIN INCREASED [None]
  - CATHETER RELATED COMPLICATION [None]
  - COAGULATION FACTOR VII LEVEL DECREASED [None]
  - COAGULATION FACTOR X LEVEL DECREASED [None]
  - DISEASE PROGRESSION [None]
  - DISSEMINATED INTRAVASCULAR COAGULATION [None]
  - DYSPEPSIA [None]
  - EPISTAXIS [None]
  - FATIGUE [None]
  - HYPERKALAEMIA [None]
  - INFECTION [None]
  - JAUNDICE [None]
  - PROTHROMBIN LEVEL DECREASED [None]
  - PYREXIA [None]
  - THROMBOCYTOPENIA [None]
  - URINARY BLADDER HAEMORRHAGE [None]
  - UROSEPSIS [None]
